FAERS Safety Report 15623162 (Version 1)
Quarter: 2018Q4

REPORT INFORMATION
  Report Type: Spontaneous
  Country: US (occurrence: US)
  Receive Date: 20181115
  Receipt Date: 20181115
  Transmission Date: 20190205
  Serious: No
  Sender: FDA-Public Use
  Company Number: US-PFIZER INC-2018465612

PATIENT
  Age: 16 Year
  Sex: Female

DRUGS (2)
  1. GENOTROPIN MQ [Suspect]
     Active Substance: SOMATROPIN
     Dosage: 1.0 MG, DAILY
     Dates: start: 20171221
  2. GENOTROPIN MQ [Suspect]
     Active Substance: SOMATROPIN
     Indication: CHARGE SYNDROME
     Dosage: 1 MG, DAILY

REACTIONS (3)
  - Product use in unapproved indication [Unknown]
  - Insulin-like growth factor decreased [Unknown]
  - Bone density decreased [Unknown]

NARRATIVE: CASE EVENT DATE: 20171207
